FAERS Safety Report 23548580 (Version 1)
Quarter: 2024Q1

REPORT INFORMATION
  Report Type: Spontaneous
  Country: US (occurrence: None)
  Receive Date: 20240219
  Receipt Date: 20240219
  Transmission Date: 20240409
  Serious: No
  Sender: FDA-Public Use
  Company Number: None

PATIENT
  Age: 64 Year
  Sex: Female

DRUGS (1)
  1. HUMIRA [Suspect]
     Active Substance: ADALIMUMAB
     Dosage: OTHER FREQUENCY : ONCE WEEKLY;?
     Route: 030

REACTIONS (4)
  - Chest discomfort [None]
  - Respiration abnormal [None]
  - Headache [None]
  - Fear [None]

NARRATIVE: CASE EVENT DATE: 20240219
